FAERS Safety Report 10260652 (Version 1)
Quarter: 2014Q2

REPORT INFORMATION
  Report Type: Spontaneous
  Country: CN (occurrence: CN)
  Receive Date: 20140626
  Receipt Date: 20140626
  Transmission Date: 20141212
  Serious: Yes (Hospitalization)
  Sender: FDA-Public Use
  Company Number: CN-ROCHE-1421183

PATIENT
  Age: 52 Year
  Sex: Female
  Weight: 73.5 kg

DRUGS (2)
  1. XELODA [Suspect]
     Indication: BREAST CANCER
     Route: 048
     Dates: start: 20130820, end: 20130916
  2. XELODA [Suspect]
     Indication: LUNG NEOPLASM MALIGNANT

REACTIONS (1)
  - Drug-induced liver injury [Recovering/Resolving]
